FAERS Safety Report 4622609-2 (Version None)
Quarter: 2005Q1

REPORT INFORMATION
  Report Type: 
  Country: None (occurrence: None)
  Receive Date: 20050325
  Receipt Date: 20050325
  Transmission Date: 20050727
  Serious: Yes (Life-Threatening, Hospitalization, Disabling)
  Sender: FDA-Public Use
  Company Number: None

PATIENT
  Sex: Female
  Weight: 70.7611 kg

DRUGS (1)
  1. TOPAMAX [Suspect]
     Indication: MIGRAINE
     Dosage: 75 MG QD ORAL
     Route: 048
     Dates: start: 20050228, end: 20050316

REACTIONS (7)
  - ABDOMINAL PAIN [None]
  - AMMONIA INCREASED [None]
  - HEPATIC NECROSIS [None]
  - HEPATITIS [None]
  - HEPATOCELLULAR DAMAGE [None]
  - NAUSEA [None]
  - PRURITUS GENERALISED [None]
